FAERS Safety Report 21960210 (Version 5)
Quarter: 2023Q1

REPORT INFORMATION
  Report Type: Report from Study
  Country: SE (occurrence: None)
  Receive Date: 20230207
  Receipt Date: 20230314
  Transmission Date: 20230418
  Serious: Yes (Hospitalization)
  Sender: FDA-Public Use
  Company Number: SE-ROCHE-3276204

PATIENT
  Age: 82 Year
  Sex: Male

DRUGS (41)
  1. OBINUTUZUMAB [Suspect]
     Active Substance: OBINUTUZUMAB
     Indication: Chronic lymphocytic leukaemia
     Route: 042
     Dates: start: 20170103, end: 20170103
  2. OBINUTUZUMAB [Suspect]
     Active Substance: OBINUTUZUMAB
     Dosage: OBINUTUZUMAB HAS BEEN GIVEN SEVERAL TIMES IN  2017
     Route: 042
     Dates: start: 20170523, end: 20170523
  3. ACALABRUTINIB [Suspect]
     Active Substance: ACALABRUTINIB
     Indication: Chronic lymphocytic leukaemia
     Route: 065
     Dates: start: 20211005, end: 20211229
  4. ACALABRUTINIB [Suspect]
     Active Substance: ACALABRUTINIB
     Route: 065
     Dates: start: 20211230, end: 20220323
  5. ACALABRUTINIB [Suspect]
     Active Substance: ACALABRUTINIB
     Route: 065
     Dates: start: 20220324, end: 20220615
  6. ACALABRUTINIB [Suspect]
     Active Substance: ACALABRUTINIB
     Route: 065
     Dates: start: 20220616, end: 20220905
  7. ACALABRUTINIB [Suspect]
     Active Substance: ACALABRUTINIB
     Route: 065
     Dates: start: 20220906, end: 20221130
  8. ACALABRUTINIB [Suspect]
     Active Substance: ACALABRUTINIB
     Route: 065
     Dates: start: 20221201
  9. ACALABRUTINIB [Suspect]
     Active Substance: ACALABRUTINIB
     Route: 065
     Dates: start: 20161205, end: 20170110
  10. ACALABRUTINIB [Suspect]
     Active Substance: ACALABRUTINIB
     Route: 065
     Dates: start: 20170111, end: 20170111
  11. ACALABRUTINIB [Suspect]
     Active Substance: ACALABRUTINIB
     Route: 065
     Dates: start: 20170112, end: 20170228
  12. ACALABRUTINIB [Suspect]
     Active Substance: ACALABRUTINIB
     Route: 065
     Dates: start: 20170301, end: 20170301
  13. ACALABRUTINIB [Suspect]
     Active Substance: ACALABRUTINIB
     Route: 065
     Dates: start: 20170302, end: 20170328
  14. ACALABRUTINIB [Suspect]
     Active Substance: ACALABRUTINIB
     Route: 065
     Dates: start: 20170329, end: 20170425
  15. ACALABRUTINIB [Suspect]
     Active Substance: ACALABRUTINIB
     Route: 065
     Dates: start: 20170426, end: 20170523
  16. ACALABRUTINIB [Suspect]
     Active Substance: ACALABRUTINIB
     Route: 065
     Dates: start: 20170524, end: 20170531
  17. ACALABRUTINIB [Suspect]
     Active Substance: ACALABRUTINIB
     Route: 065
     Dates: start: 20170601, end: 20170601
  18. ACALABRUTINIB [Suspect]
     Active Substance: ACALABRUTINIB
     Route: 065
     Dates: start: 20170602, end: 20170815
  19. METFORMIN [Concomitant]
     Active Substance: METFORMIN HYDROCHLORIDE
     Indication: Diabetes mellitus
     Dates: start: 2015, end: 2022
  20. METFORMIN [Concomitant]
     Active Substance: METFORMIN HYDROCHLORIDE
     Dates: start: 2022
  21. SIMVASTATIN [Concomitant]
     Active Substance: SIMVASTATIN
     Indication: Hypercholesterolaemia
     Dates: start: 2015
  22. DIGOXIN [Concomitant]
     Active Substance: DIGOXIN
     Indication: Atrial fibrillation
     Dates: start: 2015
  23. HYDROKLORTIAZID [Concomitant]
     Indication: Hypertension
     Dates: start: 2015
  24. CANDESARTAN [Concomitant]
     Active Substance: CANDESARTAN
     Indication: Hypertension
     Dates: start: 2015, end: 2022
  25. CANDESARTAN [Concomitant]
     Active Substance: CANDESARTAN
     Dates: start: 2022
  26. CYANOKOBALAMIN [Concomitant]
     Indication: Vitamin B12 deficiency
     Dates: start: 2013
  27. VALACYCLOVIR HYDROCHLORIDE [Concomitant]
     Active Substance: VALACYCLOVIR HYDROCHLORIDE
  28. FASTURTEC [Concomitant]
     Active Substance: RASBURICASE
  29. CLEMASTINE FUMARATE [Concomitant]
     Active Substance: CLEMASTINE FUMARATE
  30. METOPROLOL [Concomitant]
     Active Substance: METOPROLOL
  31. SOLU-MEDROL [Concomitant]
     Active Substance: METHYLPREDNISOLONE SODIUM SUCCINATE
  32. ALLOPURINOL [Concomitant]
     Active Substance: ALLOPURINOL
  33. ZOVIRAX [Concomitant]
     Active Substance: ACYCLOVIR
  34. LIDOCAINE [Concomitant]
     Active Substance: LIDOCAINE
  35. FUROSEMIDE [Concomitant]
     Active Substance: FUROSEMIDE
  36. METRONIDAZOLE [Concomitant]
     Active Substance: METRONIDAZOLE
  37. HERBALS\KARAYA GUM [Concomitant]
     Active Substance: HERBALS\KARAYA GUM
  38. COMIRNATY [Concomitant]
     Active Substance: TOZINAMERAN
  39. INFLUVAC TETRA [Concomitant]
     Active Substance: INFLUENZA VIRUS VACCINE QUADRIVALENT TYPE A+B
  40. PNEUMOVAX VACCIN [Concomitant]
  41. CEFOTAXIME [Concomitant]
     Active Substance: CEFOTAXIME SODIUM

REACTIONS (1)
  - Ureteral neoplasm [Not Recovered/Not Resolved]

NARRATIVE: CASE EVENT DATE: 20221129
